FAERS Safety Report 4538164-1 (Version None)
Quarter: 2004Q4

REPORT INFORMATION
  Report Type: 
  Country: None (occurrence: None)
  Receive Date: 20041223
  Receipt Date: 20041223
  Transmission Date: 20050328
  Serious: Yes (Other)
  Sender: FDA-Public Use
  Company Number: None

PATIENT
  Age: 25 Year
  Sex: Female
  Weight: 56.6996 kg

DRUGS (2)
  1. VIOXX [Suspect]
     Indication: TENSION HEADACHE
     Dosage: 25 MG  5 X PER MONTH  ORAL
     Route: 048
     Dates: start: 20031001, end: 20040927
  2. CELEBREX [Suspect]
     Indication: TENSION HEADACHE
     Dosage: 5 X PER MONTH ORAL
     Route: 048
     Dates: start: 20041028, end: 20041222

REACTIONS (1)
  - VENTRICULAR EXTRASYSTOLES [None]
